FAERS Safety Report 8189344-8 (Version None)
Quarter: 2012Q1

REPORT INFORMATION
  Report Type: 
  Country: None (occurrence: None)
  Receive Date: 20120302
  Receipt Date: 20120221
  Transmission Date: 20120608
  Serious: Yes (Life-Threatening, Hospitalization)
  Sender: FDA-Public Use
  Company Number: WAES 1108USA03320

PATIENT
  Age: 85 Year
  Sex: Male

DRUGS (6)
  1. GLIMEPIRIDE [Concomitant]
  2. FAMOTIDINE [Concomitant]
  3. BIO THREE [Concomitant]
  4. LOPERAMIDE HCL [Concomitant]
  5. KLOANTYL [Concomitant]
  6. JANUVIA [Suspect]
     Indication: TYPE 2 DIABETES MELLITUS
     Dosage: 50 MG/DAILY PO
     Route: 048
     Dates: start: 20110113, end: 20110817

REACTIONS (4)
  - BUNDLE BRANCH BLOCK RIGHT [None]
  - CARDIAC FAILURE CONGESTIVE [None]
  - BRADYCARDIA [None]
  - GASTROENTERITIS [None]
